FAERS Safety Report 5065794-3 (Version None)
Quarter: 2006Q3

REPORT INFORMATION
  Report Type: 
  Country: None (occurrence: None)
  Receive Date: 20060718
  Receipt Date: 20060515
  Transmission Date: 20061208
  Serious: Yes (Other)
  Sender: FDA-Public Use
  Company Number: 06-004

PATIENT
  Age: 30 Year
  Sex: Female
  Weight: 81.6475 kg

DRUGS (3)
  1. FOLIC ACID [Suspect]
     Indication: ANAEMIA
     Dosage: FOUR TIMES A DAY ORALLY
     Route: 048
     Dates: start: 20060224, end: 20060317
  2. FOLIC ACID [Suspect]
     Indication: PREGNANCY
     Dosage: FOUR TIMES A DAY ORALLY
     Route: 048
     Dates: start: 20060224, end: 20060317
  3. PHENOBARBITAL AND CARBAMAZEPINE [Concomitant]

REACTIONS (2)
  - ERYTHEMA [None]
  - PRURITUS [None]
